FAERS Safety Report 9268023 (Version 1)
Quarter: 2013Q2

REPORT INFORMATION
  Report Type: Spontaneous
  Country: US (occurrence: US)
  Receive Date: 20130502
  Receipt Date: 20130502
  Transmission Date: 20140414
  Serious: No
  Sender: FDA-Public Use
  Company Number: US-ALEXION-A201201569

PATIENT
  Age: 17 Year
  Sex: Female
  Weight: 61 kg

DRUGS (5)
  1. SOLIRIS 300MG [Suspect]
     Indication: PAROXYSMAL NOCTURNAL HAEMOGLOBINURIA
     Dosage: UNK, Q2W
     Route: 042
     Dates: start: 20120426
  2. SOLIRIS 300MG [Suspect]
     Dosage: 900 MG, Q12D
     Route: 042
     Dates: start: 20120815
  3. FOLIC ACID [Concomitant]
     Dosage: 1 MG, QD
  4. DEPO-PROVERA [Concomitant]
  5. FERROUS SULFATE [Concomitant]
     Dosage: 325 MG, QD

REACTIONS (2)
  - Blood lactate dehydrogenase increased [Not Recovered/Not Resolved]
  - Haemolysis [Not Recovered/Not Resolved]
